FAERS Safety Report 26158303 (Version 1)
Quarter: 2025Q4

REPORT INFORMATION
  Report Type: Spontaneous
  Country: US (occurrence: None)
  Receive Date: 20251215
  Receipt Date: 20251215
  Transmission Date: 20260117
  Serious: Yes (Hospitalization)
  Sender: FDA-CTU
  Company Number: None

PATIENT
  Age: 40 Year
  Sex: Female

DRUGS (2)
  1. TAVNEOS [Suspect]
     Active Substance: AVACOPAN
     Dosage: FREQUENCY : TWICE A DAY;
     Route: 048
     Dates: start: 20251113
  2. TAVNEOS [Concomitant]
     Active Substance: AVACOPAN
     Dates: start: 20251113

REACTIONS (7)
  - Bacterial vaginosis [None]
  - Tongue geographic [None]
  - Product use complaint [None]
  - Vasculitis [None]
  - Cushingoid [None]
  - Renal impairment [None]
  - Product size issue [None]

NARRATIVE: CASE EVENT DATE: 20251215
